FAERS Safety Report 4597595-4 (Version None)
Quarter: 2005Q1

REPORT INFORMATION
  Report Type: 
  Country: None (occurrence: None)
  Receive Date: 20050228
  Receipt Date: 20050228
  Transmission Date: 20050727
  Serious: Yes (Life-Threatening, Hospitalization)
  Sender: FDA-Public Use
  Company Number: None

PATIENT
  Age: 48 Year
  Sex: Female
  Weight: 78 kg

DRUGS (8)
  1. SEROQUEL [Suspect]
     Indication: BIPOLAR DISORDER
     Dosage: 200 MG BID ORAL
     Route: 048
  2. SEROQUEL [Suspect]
     Indication: POST-TRAUMATIC STRESS DISORDER
     Dosage: 200 MG BID ORAL
     Route: 048
  3. SERTRALINE HCL [Concomitant]
  4. METOCARBAMOL [Concomitant]
  5. DICYCLOMINE [Concomitant]
  6. DIVALPROEX SODIUM [Concomitant]
  7. AUGMENTIN '125' [Concomitant]
  8. GUAIFENESIN WITH CODEINE [Concomitant]

REACTIONS (3)
  - BLOOD GLUCOSE INCREASED [None]
  - KETOACIDOSIS [None]
  - MENTAL STATUS CHANGES [None]
